FAERS Safety Report 7460383-5 (Version None)
Quarter: 2011Q2

REPORT INFORMATION
  Report Type: 
  Country: None (occurrence: None)
  Receive Date: 20110505
  Receipt Date: 20110504
  Transmission Date: 20111010
  Serious: Yes (Other)
  Sender: FDA-Public Use
  Company Number: A0916565A

PATIENT
  Age: 14 Year
  Sex: Female

DRUGS (3)
  1. STOCRIN [Suspect]
     Indication: ANTIVIRAL TREATMENT
     Dosage: 600MGD PER DAY
     Route: 048
     Dates: start: 20080702, end: 20090706
  2. VIRAMUNE [Suspect]
     Indication: ANTIVIRAL TREATMENT
     Dosage: 200MGD PER DAY
     Route: 048
     Dates: start: 20090707
  3. EPZICOM [Suspect]
     Indication: ANTIVIRAL TREATMENT
     Dosage: 1TAB PER DAY
     Route: 048
     Dates: start: 20080702

REACTIONS (2)
  - DRUG EXPOSURE DURING PREGNANCY [None]
  - ABORTION INDUCED [None]
